FAERS Safety Report 7511350-4 (Version None)
Quarter: 2011Q2

REPORT INFORMATION
  Report Type: 
  Country: None (occurrence: None)
  Receive Date: 20110531
  Receipt Date: 20110519
  Transmission Date: 20111010
  Serious: Yes (Other)
  Sender: FDA-Public Use
  Company Number: FR-JNJFOC-20110208508

PATIENT
  Sex: Male
  Weight: 57 kg

DRUGS (5)
  1. RISPERDAL CONSTA [Suspect]
     Indication: SCHIZOPHRENIA
     Route: 030
     Dates: start: 20101201, end: 20110301
  2. LOXAPINE HCL [Concomitant]
     Indication: PSYCHOTIC DISORDER
     Route: 048
     Dates: start: 20101001
  3. PARKINANE [Concomitant]
     Route: 048
     Dates: start: 20101001
  4. ALL OTHER THERAPEUTIC PRODUCTS [Concomitant]
     Route: 048
     Dates: start: 20101001
  5. RISPERDAL [Suspect]
     Indication: SCHIZOPHRENIA
     Route: 048
     Dates: start: 20101001

REACTIONS (1)
  - PITUITARY TUMOUR BENIGN [None]
